FAERS Safety Report 7974814-5 (Version None)
Quarter: 2011Q4

REPORT INFORMATION
  Report Type: 
  Country: None (occurrence: None)
  Receive Date: 20111213
  Receipt Date: 20110818
  Transmission Date: 20120403
  Serious: Yes (Other)
  Sender: FDA-Public Use
  Company Number: ES-PURDUE-USA-2011-0079610

PATIENT
  Age: 90 Year
  Sex: Female

DRUGS (11)
  1. GLICLAZIDE [Concomitant]
     Indication: TYPE 2 DIABETES MELLITUS
     Dosage: UNK
     Dates: start: 20030627
  2. OMEPRAZOLE [Concomitant]
     Indication: TYPE 2 DIABETES MELLITUS
     Dosage: 20 MG, UNK
     Dates: start: 20050101
  3. SERTRALINE HYDROCHLORIDE [Concomitant]
     Indication: DEPRESSION
     Dosage: UNK
     Dates: start: 20070901
  4. TARDYFERON-FOL [Concomitant]
     Indication: PRODUCT USED FOR UNKNOWN INDICATION
     Dosage: UNK
     Dates: start: 20050101
  5. TRAMADOL HCL [Suspect]
     Indication: PAIN
     Dosage: 100 MG, DAILY
     Route: 048
     Dates: start: 20090429, end: 20090508
  6. PLAVIX [Concomitant]
     Indication: CEREBROVASCULAR ACCIDENT
     Dosage: 75 MG, DAILY
     Dates: start: 20040514
  7. AMILORIDE HYDROCHLORIDE [Suspect]
     Indication: OEDEMA
     Dosage: UNK
     Route: 048
     Dates: start: 20090331, end: 20090508
  8. SIMVASTATIN [Concomitant]
     Indication: HYPERLIPIDAEMIA
     Dosage: UNK
     Dates: start: 20030627
  9. ENOXAPARIN SODIUM [Suspect]
     Indication: FALL
     Dosage: 40 MG, DAILY
     Route: 058
     Dates: start: 20090423
  10. VALSARTAN [Concomitant]
     Indication: HYPERTENSION
     Dosage: UNK
     Dates: start: 20080818
  11. LANTUS [Concomitant]
     Indication: TYPE 2 DIABETES MELLITUS
     Dosage: UNK
     Dates: start: 20050101

REACTIONS (3)
  - VOMITING [None]
  - HYPERKALAEMIA [None]
  - NAUSEA [None]
